FAERS Safety Report 13305212 (Version 5)
Quarter: 2017Q1

REPORT INFORMATION
  Report Type: Report from Study
  Country: TW (occurrence: TW)
  Receive Date: 20170308
  Receipt Date: 20170329
  Transmission Date: 20170428
  Serious: Yes (Other)
  Sender: FDA-Public Use
  Company Number: TW-VIIV HEALTHCARE LIMITED-TW2017GSK025492

PATIENT
  Age: 23 Year
  Sex: Male
  Weight: 72 kg

DRUGS (2)
  1. DOLUTEGRAVIR [Suspect]
     Active Substance: DOLUTEGRAVIR
     Indication: HIV INFECTION
     Dosage: UNK
     Route: 048
     Dates: start: 20170117, end: 20170219
  2. LAMIVUDINE. [Suspect]
     Active Substance: LAMIVUDINE
     Indication: HIV INFECTION
     Dosage: UNK
     Route: 048
     Dates: start: 20170117, end: 20170219

REACTIONS (2)
  - Hepatitis A [Not Recovered/Not Resolved]
  - Acute hepatitis C [Not Recovered/Not Resolved]

NARRATIVE: CASE EVENT DATE: 20170216
